FAERS Safety Report 6068115-2 (Version None)
Quarter: 2009Q1

REPORT INFORMATION
  Report Type: 
  Country: None (occurrence: None)
  Receive Date: 20090206
  Receipt Date: 20090130
  Transmission Date: 20090719
  Serious: Yes (Hospitalization, Other)
  Sender: FDA-Public Use
  Company Number: GB-AMGEN-US314462

PATIENT

DRUGS (7)
  1. ENBREL [Suspect]
     Indication: RHEUMATOID ARTHRITIS
     Route: 058
     Dates: start: 20070501, end: 20071201
  2. ALENDRONIC ACID [Concomitant]
     Indication: OSTEOPOROSIS
     Dosage: 70 MG (FREQUENCY UNSPECIFIED)
     Route: 048
  3. FOLIC ACID [Concomitant]
     Indication: RHEUMATOID ARTHRITIS
     Dosage: 10 MG (FREQUENCY UNKNOWN)
     Route: 048
  4. LERCANIDIPINE [Concomitant]
     Dosage: UNKNOWN
     Route: 065
  5. METHOTREXATE [Concomitant]
     Indication: RHEUMATOID ARTHRITIS
     Dosage: 15 MG (FREQUENCY UNSPECIFIED)
     Route: 048
  6. PREDNISOLONE [Concomitant]
     Indication: RHEUMATOID ARTHRITIS
     Dosage: 10 MG ( UNKNOWN FREQUENCY)
     Route: 048
  7. BENDROFLUMETHIAZIDE [Concomitant]
     Dosage: UNKNOWN
     Route: 065

REACTIONS (2)
  - NODULAR VASCULITIS [None]
  - VASCULITIC RASH [None]
